FAERS Safety Report 10084598 (Version 1)
Quarter: 2014Q2

REPORT INFORMATION
  Report Type: Spontaneous
  Country: DE (occurrence: DE)
  Receive Date: 20140417
  Receipt Date: 20140417
  Transmission Date: 20141212
  Serious: Yes (Other)
  Sender: FDA-Public Use
  Company Number: DE-BRISTOL-MYERS SQUIBB COMPANY-20625851

PATIENT
  Age: 65 Year
  Sex: Male

DRUGS (1)
  1. FORXIGA [Suspect]

REACTIONS (1)
  - Lupus nephritis [Unknown]
